FAERS Safety Report 5312914-9 (Version None)
Quarter: 2007Q1

REPORT INFORMATION
  Report Type: 
  Country: None (occurrence: None)
  Receive Date: 20070201
  Receipt Date: 20061211
  Transmission Date: 20070707
  Serious: Yes (Hospitalization)
  Sender: FDA-Public Use
  Company Number: VNL_0342_2006

PATIENT
  Age: 85 Year
  Sex: Male
  Weight: 82.5547 kg

DRUGS (4)
  1. APOKYN [Suspect]
     Dosage: DF UNK SC
     Route: 058
     Dates: start: 20061116
  2. COGENTIN [Suspect]
     Dosage: 1 MG
  3. WELLBUTRIN [Suspect]
     Dosage: 150 MG
  4. TIGAN [Concomitant]

REACTIONS (1)
  - DEMENTIA OF THE ALZHEIMER'S TYPE, WITH DELIRIUM [None]
